FAERS Safety Report 8055224-1 (Version None)
Quarter: 2012Q1

REPORT INFORMATION
  Report Type: 
  Country: None (occurrence: None)
  Receive Date: 20120119
  Receipt Date: 20120106
  Transmission Date: 20120608
  Serious: Yes (Hospitalization)
  Sender: FDA-Public Use
  Company Number: FR-UCBSA-048878

PATIENT
  Age: 34 Year
  Sex: Male

DRUGS (1)
  1. KEPPRA [Suspect]
     Indication: EPILEPSY
     Route: 048
     Dates: start: 20090101, end: 20111201

REACTIONS (2)
  - SPINAL COMPRESSION FRACTURE [None]
  - OSTEOPOROSIS [None]
